FAERS Safety Report 24664275 (Version 1)
Quarter: 2024Q4

REPORT INFORMATION
  Report Type: Spontaneous
  Country: CH (occurrence: CH)
  Receive Date: 20241126
  Receipt Date: 20241126
  Transmission Date: 20250115
  Serious: Yes (Hospitalization)
  Sender: ORGANON
  Company Number: None

PATIENT
  Age: 40 Year
  Sex: Male

DRUGS (5)
  1. REMERON [Suspect]
     Active Substance: MIRTAZAPINE
     Dosage: SINCE AUTUMN 2022
     Dates: start: 2022
  2. BILASTINE [Suspect]
     Active Substance: BILASTINE
     Dosage: SINCE SPRING 2023
     Dates: start: 2023
  3. DAFALGAN [Suspect]
     Active Substance: ACETAMINOPHEN
     Dosage: THE PATIENT SAYS HE HAS BEEN TAKING AROUND 2G/DAY SINCE THE END OF 2022
     Dates: start: 2022
  4. DYMISTA [Suspect]
     Active Substance: AZELASTINE HYDROCHLORIDE\FLUTICASONE PROPIONATE
     Dosage: SINCE SPRING 2023
     Dates: start: 2023
  5. SYMBICORT [Concomitant]
     Active Substance: BUDESONIDE\FORMOTEROL FUMARATE DIHYDRATE
     Dosage: UNK

REACTIONS (1)
  - Pancreatitis relapsing [Recovered/Resolved]

NARRATIVE: CASE EVENT DATE: 20231001
